FAERS Safety Report 10065477 (Version 1)
Quarter: 2014Q1

REPORT INFORMATION
  Report Type: Spontaneous
  Country: US (occurrence: None)
  Receive Date: 20140328
  Receipt Date: 20140328
  Transmission Date: 20141002
  Serious: No
  Sender: FDA-Public Use
  Company Number: 1000053351

PATIENT
  Age: 71 Year
  Sex: Female

DRUGS (3)
  1. LINZESS [Suspect]
     Indication: CONSTIPATION
     Dates: start: 201401
  2. NEXIUM (ESOMEPRAZOLE) (ESOMEPRAZOLE) [Concomitant]
  3. TUMS (CALCIUM CARBONATE) (CALCIUM CARBONATE) [Concomitant]

REACTIONS (1)
  - Diarrhoea [None]
